FAERS Safety Report 6508311-0 (Version None)
Quarter: 2009Q4

REPORT INFORMATION
  Report Type: 
  Country: None (occurrence: None)
  Receive Date: 20091221
  Receipt Date: 20081209
  Transmission Date: 20100525
  Serious: No
  Sender: FDA-Public Use
  Company Number: US-ASTRAZENECA-2008UW24766

PATIENT
  Age: 22204 Day
  Sex: Female

DRUGS (3)
  1. CRESTOR [Suspect]
     Route: 048
     Dates: start: 20080301, end: 20080901
  2. HYDROCHLOROTHIAZIDE [Concomitant]
  3. DIAZEPAM [Concomitant]
     Dosage: PRN

REACTIONS (6)
  - DIZZINESS [None]
  - HEADACHE [None]
  - HYPOAESTHESIA [None]
  - INSOMNIA [None]
  - MALAISE [None]
  - PAIN IN EXTREMITY [None]
